FAERS Safety Report 5049580-6 (Version None)
Quarter: 2006Q2

REPORT INFORMATION
  Report Type: 
  Country: None (occurrence: None)
  Receive Date: 20060614
  Receipt Date: 20060221
  Transmission Date: 20061013
  Serious: Yes (Other)
  Sender: FDA-Public Use
  Company Number: 437598

PATIENT
  Age: 56 Year
  Sex: Female

DRUGS (4)
  1. BONIVA [Suspect]
     Indication: OSTEOPOROSIS
     Dosage: 150 MG 1 PER MONTH ORAL
     Route: 048
  2. PROTONIX [Concomitant]
  3. AGGRENOX [Concomitant]
  4. LEVAQUIN [Concomitant]

REACTIONS (2)
  - LOOSE TOOTH [None]
  - PERIODONTAL DISEASE [None]
